FAERS Safety Report 8368084-6 (Version None)
Quarter: 2012Q2

REPORT INFORMATION
  Report Type: 
  Country: None (occurrence: None)
  Receive Date: 20120517
  Receipt Date: 20120511
  Transmission Date: 20120825
  Serious: Yes (Death)
  Sender: FDA-Public Use
  Company Number: US-PFIZER INC-2012086375

PATIENT
  Sex: Male

DRUGS (1)
  1. REVATIO [Suspect]
     Indication: PULMONARY HYPERTENSION
     Dosage: 20 MG, 3X/DAY
     Dates: start: 20100701

REACTIONS (5)
  - ARTERIOSCLEROSIS CORONARY ARTERY [None]
  - PULMONARY HYPERTENSION [None]
  - MYOCARDIAL INFARCTION [None]
  - ARRHYTHMIA [None]
  - CARDIAC ARREST [None]
